FAERS Safety Report 9148395 (Version 2)
Quarter: 2013Q2

REPORT INFORMATION
  Report Type: Spontaneous
  Country: BR (occurrence: BR)
  Receive Date: 20130308
  Receipt Date: 20130410
  Transmission Date: 20140414
  Serious: Yes (Hospitalization, Other)
  Sender: FDA-Public Use
  Company Number: PHHY2013BR022121

PATIENT
  Sex: Female
  Weight: 49 kg

DRUGS (7)
  1. FORASEQ [Suspect]
     Indication: BRONCHIECTASIS
     Dosage: 1 DF, DAILY
     Dates: start: 201201
  2. COZAAR [Concomitant]
     Indication: BLOOD PRESSURE ABNORMAL
     Dosage: 1 DF, QD
     Route: 048
     Dates: start: 201201
  3. MOTILIUM ^BYK GULDEN^ [Concomitant]
     Dosage: UNK
  4. FLUIMUCIL [Concomitant]
     Dosage: UNK
  5. CONCOR [Concomitant]
     Indication: BLOOD PRESSURE ABNORMAL
     Dosage: 1 DF, QD
     Route: 048
     Dates: start: 201201
  6. SEROQUEL [Concomitant]
     Dosage: UNK
  7. PANTOPRAZOL [Concomitant]
     Indication: GASTRIC DISORDER
     Dosage: 1 DF, QD
     Route: 048

REACTIONS (7)
  - Blood sodium decreased [Not Recovered/Not Resolved]
  - Osteoporosis [Not Recovered/Not Resolved]
  - General physical health deterioration [Not Recovered/Not Resolved]
  - Memory impairment [Not Recovered/Not Resolved]
  - Blood pressure fluctuation [Recovered/Resolved]
  - Influenza [Recovered/Resolved]
  - Pneumonia [Recovered/Resolved]
